FAERS Safety Report 21241506 (Version 1)
Quarter: 2022Q3

REPORT INFORMATION
  Report Type: Spontaneous
  Country: US (occurrence: US)
  Receive Date: 20220823
  Receipt Date: 20220823
  Transmission Date: 20221027
  Serious: Yes (Hospitalization)
  Sender: FDA-Public Use
  Company Number: US-AMNEAL PHARMACEUTICALS-2022-AMRX-02328

PATIENT
  Age: 4 Month
  Sex: Male
  Weight: 7.256 kg

DRUGS (1)
  1. VIGABATRIN [Suspect]
     Active Substance: VIGABATRIN
     Indication: Product used for unknown indication
     Dosage: 1 TO 3 DAYS 200 ML BY MOUTH TWICE, DAILY 4 TO 6 DAYS 100 MG TWICE DAILY 07 DAY AND BEYOND 100 MG TWI
     Route: 048

REACTIONS (1)
  - Adverse event [Unknown]
